FAERS Safety Report 10360473 (Version 1)
Quarter: 2014Q3

REPORT INFORMATION
  Report Type: Spontaneous
  Country: GB (occurrence: GB)
  Receive Date: 20140804
  Receipt Date: 20140804
  Transmission Date: 20150326
  Serious: Yes (Other)
  Sender: FDA-Public Use
  Company Number: PHHY2014GB092453

PATIENT
  Age: 59 Year
  Sex: Female
  Weight: 64.86 kg

DRUGS (3)
  1. AMOXICILLIN. [Concomitant]
     Active Substance: AMOXICILLIN
     Dosage: 250 MG, UNK
  2. IBUPROFEN. [Concomitant]
     Active Substance: IBUPROFEN
     Dosage: 400 MG, UNK
  3. METRONIDAZOLE. [Suspect]
     Active Substance: METRONIDAZOLE
     Indication: ANTIBIOTIC PROPHYLAXIS
     Dosage: 200 MG, UNK
     Route: 048
     Dates: start: 20140710, end: 20140713

REACTIONS (5)
  - Skin disorder [Recovering/Resolving]
  - Discomfort [Recovering/Resolving]
  - Skin sensitisation [Recovering/Resolving]
  - Salivary gland pain [Recovering/Resolving]
  - Myalgia [Recovering/Resolving]

NARRATIVE: CASE EVENT DATE: 20140711
